FAERS Safety Report 9590795 (Version 1)
Quarter: 2013Q4

REPORT INFORMATION
  Report Type: Spontaneous
  Country: US (occurrence: US)
  Receive Date: 20131003
  Receipt Date: 20131003
  Transmission Date: 20140711
  Serious: No
  Sender: FDA-Public Use
  Company Number: US-AMGEN-USASP2012076243

PATIENT
  Age: 57 Year
  Sex: Male
  Weight: 86.17 kg

DRUGS (11)
  1. ENBREL [Suspect]
     Indication: RHEUMATOID ARTHRITIS
     Dosage: 50 MG, QWK
     Route: 058
  2. METHOTREXATE [Concomitant]
     Dosage: 2.5 MG UNK
  3. PREDNISONE [Concomitant]
     Dosage: 5 MG, UNK
  4. ROXICET [Concomitant]
     Dosage: 5-500MG UNK
  5. LORAZEPAM [Concomitant]
     Dosage: 1 MG, UNK
  6. FISH OIL [Concomitant]
     Dosage: UNK
  7. CALCIUM [Concomitant]
     Dosage: UNK,500
  8. MULTIVITAMIN                       /07504101/ [Concomitant]
     Dosage: UNK
  9. VITAMIN C                          /00008001/ [Concomitant]
     Dosage: 500 MG, UNK
  10. FOLIC ACID [Concomitant]
     Dosage: 20 MG, UNK
  11. ASPIRIN LOW [Concomitant]
     Dosage: 81 MG, UNK

REACTIONS (2)
  - Therapeutic response decreased [Unknown]
  - Fatigue [Unknown]
